FAERS Safety Report 23744882 (Version 1)
Quarter: 2024Q2

REPORT INFORMATION
  Report Type: Report from Study
  Country: US (occurrence: US)
  Receive Date: 20240415
  Receipt Date: 20240415
  Transmission Date: 20240716
  Serious: Yes (Other)
  Sender: FDA-Public Use
  Company Number: US-JNJFOC-20240382981

PATIENT
  Age: 26 Year
  Sex: Female

DRUGS (2)
  1. SPRAVATO [Suspect]
     Active Substance: ESKETAMINE
     Indication: Depression
     Dosage: ^56 MG, 2 TOTAL DOSES^
     Dates: start: 20240311, end: 20240313
  2. SPRAVATO [Suspect]
     Active Substance: ESKETAMINE
     Dosage: MOST RECENT DOSE (84 MG) ON 05-APR-2024.?^84 MG, 6 TOTAL DOSES^
     Dates: start: 20240320, end: 20240401

REACTIONS (7)
  - Hallucination, visual [Unknown]
  - Tachyphrenia [Unknown]
  - Insomnia [Unknown]
  - Panic attack [Unknown]
  - Drug ineffective [Unknown]
  - Affective disorder [Unknown]
  - Confusional state [Unknown]

NARRATIVE: CASE EVENT DATE: 20240101
